FAERS Safety Report 4688062-8 (Version None)
Quarter: 2005Q2

REPORT INFORMATION
  Report Type: 
  Country: None (occurrence: None)
  Receive Date: 20050609
  Receipt Date: 20050527
  Transmission Date: 20051028
  Serious: Yes (Death)
  Sender: FDA-Public Use
  Company Number: 2005081412

PATIENT
  Sex: Female
  Weight: 69.4003 kg

DRUGS (1)
  1. CELEBREX [Suspect]
     Dosage: ORAL
     Route: 048
     Dates: end: 20050101

REACTIONS (2)
  - GASTRIC HAEMORRHAGE [None]
  - PAIN IN EXTREMITY [None]
